FAERS Safety Report 15566557 (Version 2)
Quarter: 2018Q4

REPORT INFORMATION
  Report Type: Spontaneous
  Country: US (occurrence: US)
  Receive Date: 20181030
  Receipt Date: 20181113
  Transmission Date: 20190205
  Serious: Yes (Other)
  Sender: FDA-Public Use
  Company Number: US-TEVA-2018-US-969306

PATIENT
  Age: 25 Year
  Sex: Male

DRUGS (2)
  1. ESTRADIOL-VALERATE [Suspect]
     Active Substance: ESTRADIOL VALERATE
     Indication: FEMINISATION ACQUIRED
     Route: 065
  2. CONJUGATED EQUINE ESTROGENS [Suspect]
     Active Substance: ESTROGENS, CONJUGATED
     Indication: FEMINISATION ACQUIRED
     Route: 065

REACTIONS (1)
  - Phyllodes tumour [Unknown]
